FAERS Safety Report 5871518-X (Version None)
Quarter: 2008Q3

REPORT INFORMATION
  Report Type: 
  Country: None (occurrence: None)
  Receive Date: 20080905
  Receipt Date: 20080313
  Transmission Date: 20090109
  Serious: Yes (Hospitalization)
  Sender: FDA-Public Use
  Company Number: A0715260A

PATIENT
  Age: 77 Year
  Sex: Female

DRUGS (2)
  1. REQUIP [Suspect]
     Indication: RESTLESS LEGS SYNDROME
     Dosage: .75MG PER DAY
     Route: 048
  2. CONCURRENT MEDICATIONS [Concomitant]

REACTIONS (3)
  - INTESTINAL OBSTRUCTION [None]
  - ULCER HAEMORRHAGE [None]
  - VOMITING [None]
